FAERS Safety Report 5223827-5 (Version None)
Quarter: 2007Q1

REPORT INFORMATION
  Report Type: 
  Country: None (occurrence: None)
  Receive Date: 20070130
  Receipt Date: 20070118
  Transmission Date: 20070707
  Serious: Yes (Other)
  Sender: FDA-Public Use
  Company Number: PHBS2007BE01180

PATIENT
  Age: 49 Year
  Sex: Female
  Weight: 72 kg

DRUGS (10)
  1. ZOMETA [Suspect]
     Indication: METASTASES TO BONE
     Dosage: 4 MG, MONTHLY
     Route: 042
     Dates: start: 20020909, end: 20051221
  2. PALLADONE [Concomitant]
     Dosage: 24 MG, BID
     Route: 065
  3. ELTHYRONE [Concomitant]
     Dosage: 150 UG/D
     Route: 065
  4. FELDENE [Concomitant]
     Dosage: 1 DF/D
     Route: 065
  5. DURAGESIC-100 [Concomitant]
     Dosage: 150 UG, /3 DAYS
     Route: 065
  6. MEDROL [Concomitant]
     Route: 065
  7. PARIET [Concomitant]
     Dosage: 10 MG/D
     Route: 065
  8. FEMARA [Concomitant]
     Dosage: 2.5 MG/D
     Route: 065
  9. DEPAKENE [Concomitant]
     Dosage: 500 MG, TID
     Route: 065
  10. LAPATINIB [Concomitant]
     Dosage: 1 SIX TIMES A DAY
     Route: 065

REACTIONS (3)
  - INFECTION [None]
  - OSTEONECROSIS [None]
  - ULCER [None]
